FAERS Safety Report 9109005 (Version 3)
Quarter: 2013Q1

REPORT INFORMATION
  Report Type: Spontaneous
  Country: US (occurrence: US)
  Receive Date: 20130222
  Receipt Date: 20130313
  Transmission Date: 20140127
  Serious: No
  Sender: FDA-Public Use
  Company Number: US-PFIZER INC-2013065842

PATIENT
  Age: 83 Year
  Sex: Female
  Weight: 54 kg

DRUGS (6)
  1. CADUET [Suspect]
     Indication: HYPERTENSION
     Dosage: 5/10MG, UNK
     Route: 048
     Dates: end: 201302
  2. CADUET [Suspect]
     Indication: BLOOD CHOLESTEROL INCREASED
     Dosage: 10/10MG, ONCE A DAY
  3. LEVOTHYROXINE [Concomitant]
     Indication: HYPOTHYROIDISM
     Dosage: 88 UG, 1X/DAY
  4. ATENOLOL [Concomitant]
     Dosage: 25 MG, 1X/DAY
  5. METFORMIN [Concomitant]
     Dosage: 500 MG, 1X/DAY
  6. OMEPRAZOLE [Concomitant]
     Dosage: 80 MG, 1X/DAY

REACTIONS (2)
  - Nervousness [Unknown]
  - Body height decreased [Unknown]
